FAERS Safety Report 17712035 (Version 3)
Quarter: 2020Q3

REPORT INFORMATION
  Report Type: Report from Study
  Country: None (occurrence: US)
  Receive Date: 20200427
  Receipt Date: 20200721
  Transmission Date: 20201102
  Serious: Yes (Hospitalization)
  Sender: FDA-Public Use
  Company Number: US-ABBVIE-20K-163-3375833-00

PATIENT
  Age: 55 Year
  Sex: Male

DRUGS (1)
  1. HUMIRA [Suspect]
     Active Substance: ADALIMUMAB
     Indication: PSORIASIS
     Route: 058
     Dates: start: 202004

REACTIONS (3)
  - Ataxia [Unknown]
  - Transient ischaemic attack [Unknown]
  - Disorientation [Unknown]

NARRATIVE: CASE EVENT DATE: 20200422
